FAERS Safety Report 8392865-6 (Version None)
Quarter: 2012Q2

REPORT INFORMATION
  Report Type: 
  Country: None (occurrence: None)
  Receive Date: 20120529
  Receipt Date: 20110602
  Transmission Date: 20120825
  Serious: No
  Sender: FDA-Public Use
  Company Number: US-MYLANLABS-2011S1009925

PATIENT
  Age: 73 Year
  Sex: Female

DRUGS (7)
  1. LISINOPRIL [Concomitant]
     Indication: BLOOD PRESSURE
  2. PREDNISONE [Concomitant]
     Indication: POLYMYALGIA RHEUMATICA
  3. PEPCID [Concomitant]
  4. ZOLPIDEM TARTRATE [Suspect]
     Dates: end: 20110512
  5. TYLENOL [Concomitant]
     Indication: PAIN
  6. ZOLPIDEM TARTRATE [Suspect]
  7. ZOLPIDEM TARTRATE [Suspect]
     Indication: INSOMNIA
     Dates: start: 20110319

REACTIONS (3)
  - DYSGEUSIA [None]
  - REACTION TO DRUG EXCIPIENTS [None]
  - HEADACHE [None]
